FAERS Safety Report 7510279-5 (Version None)
Quarter: 2011Q2

REPORT INFORMATION
  Report Type: 
  Country: None (occurrence: None)
  Receive Date: 20110527
  Receipt Date: 20110517
  Transmission Date: 20111010
  Serious: Yes (Hospitalization, Disabling, Other)
  Sender: FDA-Public Use
  Company Number: GB-UCBSA-032259

PATIENT
  Sex: Female

DRUGS (4)
  1. CLOBAZAM [Concomitant]
     Indication: EPILEPSY
     Route: 048
     Dates: start: 20100101
  2. OMEPRAZOLE [Concomitant]
  3. KEPPRA [Suspect]
     Indication: EPILEPSY
     Dosage: 750MG + 1000MG
     Route: 048
     Dates: start: 20100101, end: 20110401
  4. TOPIRAMATE [Concomitant]
     Indication: EPILEPSY
     Route: 048
     Dates: start: 20100520

REACTIONS (1)
  - TUBULOINTERSTITIAL NEPHRITIS [None]
